FAERS Safety Report 24648375 (Version 1)
Quarter: 2024Q4

REPORT INFORMATION
  Report Type: Report from Study
  Country: US (occurrence: US)
  Receive Date: 20241121
  Receipt Date: 20241121
  Transmission Date: 20250114
  Serious: Yes (Other)
  Sender: ABBVIE
  Company Number: US-ABBVIE-6007856

PATIENT
  Age: 45 Year
  Sex: Female

DRUGS (1)
  1. SKYRIZI [Suspect]
     Active Substance: RISANKIZUMAB-RZAA
     Indication: Psoriasis
     Route: 058
     Dates: start: 20240726

REACTIONS (3)
  - Plasma cell myeloma [Unknown]
  - Hypergammaglobulinaemia benign monoclonal [Not Recovered/Not Resolved]
  - Protein total decreased [Not Recovered/Not Resolved]

NARRATIVE: CASE EVENT DATE: 20241104
